FAERS Safety Report 15110172 (Version 1)
Quarter: 2018Q3

REPORT INFORMATION
  Report Type: Spontaneous
  Country: US (occurrence: US)
  Receive Date: 20180705
  Receipt Date: 20180705
  Transmission Date: 20181010
  Serious: No
  Sender: FDA-Public Use
  Company Number: US-009507513-1806USA004387

PATIENT
  Age: 22 Year
  Sex: Female
  Weight: 80.73 kg

DRUGS (1)
  1. NEXPLANON [Suspect]
     Active Substance: ETONOGESTREL
     Indication: MENSTRUATION IRREGULAR
     Dosage: 1 IMPLANT EVERY 3 YEARS
     Route: 059
     Dates: start: 20150629

REACTIONS (4)
  - Weight increased [Unknown]
  - Amenorrhoea [Recovered/Resolved]
  - Product use in unapproved indication [Unknown]
  - Menorrhagia [Recovered/Resolved]

NARRATIVE: CASE EVENT DATE: 20150629
